FAERS Safety Report 23750377 (Version 1)
Quarter: 2024Q2

REPORT INFORMATION
  Report Type: Spontaneous
  Country: CA (occurrence: CA)
  Receive Date: 20240417
  Receipt Date: 20240417
  Transmission Date: 20240716
  Serious: Yes (Hospitalization)
  Sender: FDA-Public Use
  Company Number: CA-JNJFOC-20240417859

PATIENT
  Age: 80 Year
  Sex: Male
  Weight: 86 kg

DRUGS (5)
  1. LENALIDOMIDE [Suspect]
     Active Substance: LENALIDOMIDE
     Indication: Plasma cell myeloma
     Dosage: DAYS 1 - 14 OF 21-DAY CYCLE, CYCLES 1-8 AFTER 25MG PO DAILY DAY 1-21
     Route: 048
  2. LENALIDOMIDE [Suspect]
     Active Substance: LENALIDOMIDE
     Dosage: DAYS 1 - 14 OF 21-DAY CYCLE, CYCLES 1-8 AFTER 25MG PO DAILY DAY 1-21
     Route: 048
  3. BORTEZOMIB [Suspect]
     Active Substance: BORTEZOMIB
     Indication: Plasma cell myeloma
     Dosage: DAYS 1, 4, 8 AND 11 OF CYCLES 1-8
     Route: 058
  4. DEXAMETHASONE [Suspect]
     Active Substance: DEXAMETHASONE
     Indication: Plasma cell myeloma
     Dosage: DAYS 1, 2, 4, 5, 8, 9, 11, 12 CYCLE 1-8 AFTER DAYS 1, 8, 15, 22
  5. DARATUMUMAB [Suspect]
     Active Substance: DARATUMUMAB
     Indication: Plasma cell myeloma
     Dates: start: 20190208, end: 20190830

REACTIONS (5)
  - Asthenia [Recovering/Resolving]
  - Pituitary tumour benign [Unknown]
  - Viral infection [Unknown]
  - Anaemia [Unknown]
  - Off label use [Unknown]

NARRATIVE: CASE EVENT DATE: 20240401
